FAERS Safety Report 12878953 (Version 1)
Quarter: 2016Q4

REPORT INFORMATION
  Report Type: Spontaneous
  Country: IT (occurrence: IT)
  Receive Date: 20161024
  Receipt Date: 20161024
  Transmission Date: 20170207
  Serious: Yes (Other)
  Sender: FDA-Public Use
  Company Number: IT-ASTRAZENECA-2016SF11131

PATIENT
  Age: 14391 Day
  Sex: Male

DRUGS (2)
  1. SEROQUEL [Suspect]
     Active Substance: QUETIAPINE FUMARATE
     Indication: INTENTIONAL SELF-INJURY
     Dosage: 12 DOSAGE FORMS TOTAL
     Route: 048
     Dates: start: 20150618, end: 20150618
  2. PAROXETINE. [Concomitant]
     Active Substance: PAROXETINE

REACTIONS (3)
  - Aggression [Recovering/Resolving]
  - Drug abuse [Recovering/Resolving]
  - Agitation [Recovering/Resolving]

NARRATIVE: CASE EVENT DATE: 20150618
